FAERS Safety Report 5835394-3 (Version None)
Quarter: 2008Q3

REPORT INFORMATION
  Report Type: 
  Country: None (occurrence: None)
  Receive Date: 20080806
  Receipt Date: 20080729
  Transmission Date: 20090109
  Serious: Yes (Hospitalization)
  Sender: FDA-Public Use
  Company Number: US-NOVOPROD-277879

PATIENT

DRUGS (4)
  1. NOVOLOG [Suspect]
     Indication: INSULIN-REQUIRING TYPE 2 DIABETES MELLITUS
     Dosage: UNK, TID
     Route: 058
     Dates: end: 20080601
  2. LANTUS [Suspect]
     Indication: INSULIN-REQUIRING TYPE 2 DIABETES MELLITUS
     Dosage: UNK, UNK
     Route: 058
     Dates: end: 20080601
  3. LASIX [Concomitant]
     Indication: CARDIAC FAILURE CONGESTIVE
     Dosage: UNK, QD
     Route: 048
  4. VITAMIN B-12 [Concomitant]
     Indication: ANAEMIA VITAMIN B12 DEFICIENCY
     Dosage: UNKNOWN

REACTIONS (2)
  - DISORIENTATION [None]
  - HYPERGLYCAEMIA [None]
